FAERS Safety Report 9056041 (Version 17)
Quarter: 2014Q2

REPORT INFORMATION
  Report Type: Report from Study
  Country: CA (occurrence: CA)
  Receive Date: 20130205
  Receipt Date: 20140529
  Transmission Date: 20141212
  Serious: Yes (Other)
  Sender: FDA-Public Use
  Company Number: PHHY2011CA58982

PATIENT
  Age: 45 Year
  Sex: Male

DRUGS (2)
  1. SANDOSTATIN LAR [Suspect]
     Indication: NEUROENDOCRINE TUMOUR
     Dosage: 30 MG, EVERY FOUR WEEKS
     Route: 030
     Dates: start: 20110602
  2. SANDOSTATIN LAR [Suspect]
     Dosage: 30 MG, EVERY FOUR WEEKS
     Route: 030
     Dates: start: 20131230

REACTIONS (33)
  - Abdominal neoplasm [Unknown]
  - Blood pressure decreased [Unknown]
  - Loss of consciousness [Unknown]
  - Nephrolithiasis [Recovered/Resolved]
  - Rectal haemorrhage [Unknown]
  - Blood pressure increased [Unknown]
  - Diarrhoea [Unknown]
  - Injection site haemorrhage [Unknown]
  - Syncope [Unknown]
  - Arthralgia [Recovered/Resolved]
  - Back pain [Unknown]
  - Discomfort [Unknown]
  - Feeling cold [Unknown]
  - Depression [Unknown]
  - Emotional disorder [Unknown]
  - Crying [Unknown]
  - Feeling of despair [Unknown]
  - Blood pressure fluctuation [Unknown]
  - Insomnia [Unknown]
  - Pallor [Unknown]
  - Anxiety [Not Recovered/Not Resolved]
  - Malaise [Unknown]
  - Lethargy [Unknown]
  - Fatigue [Not Recovered/Not Resolved]
  - Abdominal pain [Not Recovered/Not Resolved]
  - Injection site pain [Unknown]
  - Headache [Unknown]
  - Constipation [Unknown]
  - Faeces discoloured [Recovered/Resolved]
  - Abdominal distension [Unknown]
  - Dizziness [Unknown]
  - Nausea [Unknown]
  - Pain [Unknown]
